FAERS Safety Report 17963550 (Version 1)
Quarter: 2020Q2

REPORT INFORMATION
  Report Type: Report from Study
  Country: None (occurrence: US)
  Receive Date: 20200630
  Receipt Date: 20200630
  Transmission Date: 20200714
  Serious: Yes (Hospitalization)
  Sender: FDA-Public Use
  Company Number: US-BIOVITRUM-2020US0047

PATIENT
  Sex: Female

DRUGS (1)
  1. KINERET [Suspect]
     Active Substance: ANAKINRA
     Indication: OSTEOMYELITIS CHRONIC
     Route: 058

REACTIONS (5)
  - Hypotension [Unknown]
  - Product dose omission [Recovered/Resolved]
  - Influenza [Unknown]
  - Asthenia [Unknown]
  - Off label use [Unknown]
